FAERS Safety Report 8270991-X (Version None)
Quarter: 2012Q2

REPORT INFORMATION
  Report Type: 
  Country: None (occurrence: None)
  Receive Date: 20120410
  Receipt Date: 20120328
  Transmission Date: 20120825
  Serious: Yes (Hospitalization)
  Sender: FDA-Public Use
  Company Number: SE-ELI_LILLY_AND_COMPANY-SE201204000362

PATIENT
  Age: 46 Year
  Sex: Female

DRUGS (2)
  1. CYMBALTA [Suspect]
     Dosage: 60 MG, UNK
     Dates: start: 20111101
  2. CYMBALTA [Suspect]
     Dosage: 120 MG, UNK

REACTIONS (2)
  - DISORIENTATION [None]
  - AMNESIA [None]
